FAERS Safety Report 8175354-3 (Version None)
Quarter: 2012Q1

REPORT INFORMATION
  Report Type: 
  Country: None (occurrence: None)
  Receive Date: 20120229
  Receipt Date: 20120223
  Transmission Date: 20120608
  Serious: Yes (Other)
  Sender: FDA-Public Use
  Company Number: US-PFIZER INC-2012040846

PATIENT

DRUGS (2)
  1. LYRICA [Suspect]
     Dosage: UNK
  2. TIKOSYN [Suspect]
     Dosage: UNK

REACTIONS (1)
  - ARRHYTHMIA [None]
